FAERS Safety Report 4894440-4 (Version None)
Quarter: 2006Q1

REPORT INFORMATION
  Report Type: 
  Country: None (occurrence: None)
  Receive Date: 20060127
  Receipt Date: 20060117
  Transmission Date: 20060701
  Serious: Yes (Hospitalization)
  Sender: FDA-Public Use
  Company Number: IL-ROCHE-433084

PATIENT
  Age: 65 Year
  Sex: Female
  Weight: 72 kg

DRUGS (10)
  1. DACLIZUMAB [Suspect]
     Route: 042
     Dates: start: 20040830
  2. MYCOPHENOLATE MOFETIL [Suspect]
     Route: 048
     Dates: start: 20040830, end: 20041023
  3. MYCOPHENOLATE MOFETIL [Suspect]
     Route: 048
     Dates: start: 20050306
  4. CYCLOSPORINE [Suspect]
     Route: 048
     Dates: start: 20040830
  5. OMEPRAZOLE [Concomitant]
  6. PREDNISONE [Concomitant]
     Dates: start: 20040906
  7. NORMITEN [Concomitant]
     Dates: start: 20040902
  8. GANCICLOVIR [Concomitant]
     Dates: start: 20040902
  9. SIMVASTATIN [Concomitant]
  10. VALGANCICLOVIR [Concomitant]
     Dates: start: 20041010

REACTIONS (12)
  - BLOOD CREATININE INCREASED [None]
  - ENTEROCOCCAL INFECTION [None]
  - EPIDIDYMITIS [None]
  - KLEBSIELLA INFECTION [None]
  - NECROSIS [None]
  - NEUROGENIC BLADDER [None]
  - ORCHITIS [None]
  - PHIMOSIS [None]
  - PNEUMONIA KLEBSIELLA [None]
  - URINARY RETENTION [None]
  - URINARY TRACT INFECTION [None]
  - UROSEPSIS [None]
